FAERS Safety Report 18272452 (Version 2)
Quarter: 2021Q4

REPORT INFORMATION
  Report Type: Spontaneous
  Country: US (occurrence: US)
  Receive Date: 20200916
  Receipt Date: 20211018
  Transmission Date: 20220303
  Serious: Yes (Other)
  Sender: FDA-Public Use
  Company Number: US-SAARTEMIS-SAC202009140268

PATIENT
  Age: 61 Year
  Sex: Female

DRUGS (2)
  1. ZANTAC [Suspect]
     Active Substance: RANITIDINE HYDROCHLORIDE
     Indication: Dyspepsia
     Dosage: UNK, QW
     Dates: start: 198001, end: 202001
  2. ZANTAC [Suspect]
     Active Substance: RANITIDINE HYDROCHLORIDE
     Indication: Erosive oesophagitis

REACTIONS (5)
  - Lung carcinoma cell type unspecified stage I [Unknown]
  - Oesophageal carcinoma [Unknown]
  - Colorectal cancer stage I [Unknown]
  - Hypopharyngeal cancer stage III [Unknown]
  - Throat cancer [Unknown]

NARRATIVE: CASE EVENT DATE: 20120101
